FAERS Safety Report 16362628 (Version 1)
Quarter: 2019Q2

REPORT INFORMATION
  Report Type: Report from Study
  Country: US (occurrence: US)
  Receive Date: 20190528
  Receipt Date: 20190528
  Transmission Date: 20190711
  Serious: Yes (Other)
  Sender: FDA-Public Use
  Company Number: US-INCYTE CORPORATION-2019IN005111

PATIENT

DRUGS (1)
  1. JAKAFI [Suspect]
     Active Substance: RUXOLITINIB
     Indication: MYELOFIBROSIS
     Dosage: LOWEST DOSE
     Route: 048

REACTIONS (7)
  - Depression [Unknown]
  - Hypoxia [Unknown]
  - Balance disorder [Unknown]
  - Decreased activity [Unknown]
  - Disorientation [Unknown]
  - Anxiety [Unknown]
  - Neuropathy peripheral [Unknown]
